FAERS Safety Report 5135773-6 (Version None)
Quarter: 2006Q4

REPORT INFORMATION
  Report Type: 
  Country: None (occurrence: None)
  Receive Date: 20061024
  Receipt Date: 20061024
  Transmission Date: 20070319
  Serious: Yes (Hospitalization)
  Sender: FDA-Public Use
  Company Number: None

PATIENT
  Sex: Male

DRUGS (14)
  1. CITALOPRAM HYDROBROMIDE [Suspect]
     Indication: DEPRESSION
     Dosage: 10 MG   DAILY   PO
     Route: 048
     Dates: start: 20060807, end: 20060811
  2. VALSARTAN [Concomitant]
  3. TERAZOSIN HCL [Concomitant]
  4. GLIPIZIDE [Concomitant]
  5. ALBUTEROL [Concomitant]
  6. IPRATROPIUM BROMIDE [Concomitant]
  7. LORAZEPAM [Concomitant]
  8. FUROSEMIDE [Concomitant]
  9. ASPIRIN [Concomitant]
  10. CYANOCOBALAMIN [Concomitant]
  11. DONEPEZIL HCL [Concomitant]
  12. METOPROLOL TARTRATE [Concomitant]
  13. ROSIGLITAZONE [Concomitant]
  14. FERROUS SULFATE TAB [Concomitant]

REACTIONS (1)
  - SEROTONIN SYNDROME [None]
